FAERS Safety Report 20796212 (Version 7)
Quarter: 2023Q2

REPORT INFORMATION
  Report Type: Report from Study
  Country: US (occurrence: US)
  Receive Date: 20220506
  Receipt Date: 20230420
  Transmission Date: 20230721
  Serious: Yes (Other)
  Sender: FDA-Public Use
  Company Number: US-UCBSA-2022024524

PATIENT
  Age: 53 Year
  Sex: Female
  Weight: 115 kg

DRUGS (8)
  1. LACOSAMIDE [Suspect]
     Active Substance: LACOSAMIDE
     Indication: Seizure
     Dosage: 150MG (100 MG 1.5 TAB) IN AM AND 200MG AT PM
  2. LACOSAMIDE [Suspect]
     Active Substance: LACOSAMIDE
     Indication: Epilepsy
     Dosage: 350 MILLIGRAM, 2X/DAY (BID) (VIMPAT FROM 3 PILLS TO 2 PILLS A DAY)
  3. LACOSAMIDE [Suspect]
     Active Substance: LACOSAMIDE
     Dosage: 100 MILLIGRAM,1T IN THE AM + 2 T IN THE PM
  4. LACOSAMIDE [Suspect]
     Active Substance: LACOSAMIDE
     Dosage: 350 MILLIGRAM, 2X/DAY (BID) 1 IN MORNING AND 1 AT NIGHT
     Dates: start: 2015
  5. KEPPRA [Suspect]
     Active Substance: LEVETIRACETAM
     Indication: Seizure
     Dosage: 2 KEPPRA IN MORNING AND 2 IN THE EVENING
     Route: 065
  6. KEPPRA [Suspect]
     Active Substance: LEVETIRACETAM
     Dosage: 300 MILLIGRAM
  7. KEPPRA [Suspect]
     Active Substance: LEVETIRACETAM
     Dosage: 200 MILLIGRAM
  8. KEPPRA [Suspect]
     Active Substance: LEVETIRACETAM
     Dosage: 500 MILLIGRAM, 2X/DAY (BID) 2 AT MORNING AND 2 AT NIGHT
     Dates: start: 2015

REACTIONS (11)
  - Aneurysm [Not Recovered/Not Resolved]
  - Weight increased [Not Recovered/Not Resolved]
  - Illness [Not Recovered/Not Resolved]
  - Amnesia [Not Recovered/Not Resolved]
  - COVID-19 [Not Recovered/Not Resolved]
  - Seizure [Recovering/Resolving]
  - Haematoma [Unknown]
  - Headache [Unknown]
  - Temperature intolerance [Not Recovered/Not Resolved]
  - Product use issue [Unknown]
  - Drug level increased [Unknown]

NARRATIVE: CASE EVENT DATE: 20201201
